FAERS Safety Report 6278237-9 (Version None)
Quarter: 2009Q3

REPORT INFORMATION
  Report Type: 
  Country: None (occurrence: None)
  Receive Date: 20090722
  Receipt Date: 20090721
  Transmission Date: 20100115
  Serious: No
  Sender: FDA-Public Use
  Company Number: US-B.I. PHARMACEUTICALS,INC./RIDGEFIELD-2009-BP-08597BP

PATIENT
  Age: 10 Year
  Sex: Female

DRUGS (2)
  1. MOBIC [Suspect]
     Indication: JUVENILE ARTHRITIS
     Dosage: 7.5 MG
     Route: 048
     Dates: start: 20081201, end: 20090714
  2. SINGULAIR [Concomitant]
     Indication: ASTHMA

REACTIONS (2)
  - RASH PRURITIC [None]
  - URTICARIA [None]
